FAERS Safety Report 7306652-0 (Version None)
Quarter: 2011Q1

REPORT INFORMATION
  Report Type: 
  Country: None (occurrence: None)
  Receive Date: 20110222
  Receipt Date: 20110208
  Transmission Date: 20110831
  Serious: Yes (Death)
  Sender: FDA-Public Use
  Company Number: US-CELGENEUS-163-21880-11011359

PATIENT
  Sex: Female

DRUGS (4)
  1. REVLIMID [Suspect]
     Route: 048
     Dates: start: 20100801
  2. REVLIMID [Suspect]
     Route: 048
     Dates: start: 20100901
  3. REVLIMID [Suspect]
     Indication: MULTIPLE MYELOMA
     Route: 048
     Dates: start: 20090201
  4. REVLIMID [Suspect]
     Route: 048
     Dates: start: 20090401

REACTIONS (3)
  - RENAL FAILURE [None]
  - INFECTION [None]
  - MULTIPLE MYELOMA [None]
